FAERS Safety Report 12281847 (Version 1)
Quarter: 2016Q2

REPORT INFORMATION
  Report Type: Spontaneous
  Country: ES (occurrence: ES)
  Receive Date: 20160419
  Receipt Date: 20160419
  Transmission Date: 20160815
  Serious: Yes (Hospitalization, Other)
  Sender: FDA-Public Use
  Company Number: ES-AMGEN-ESPSL2016047535

PATIENT
  Age: 82 Year
  Sex: Male

DRUGS (9)
  1. KARVEA [Concomitant]
     Active Substance: IRBESARTAN
     Dosage: UNK
  2. PANTOPRAZOLE [Concomitant]
     Active Substance: PANTOPRAZOLE SODIUM
     Dosage: UNK
  3. DIAFUSOR [Concomitant]
     Active Substance: NITROGLYCERIN
     Dosage: UNK
  4. ATENOLOL. [Concomitant]
     Active Substance: ATENOLOL
     Dosage: UNK
  5. ESCITALOPRAM [Concomitant]
     Active Substance: ESCITALOPRAM OXALATE
     Dosage: UNK
  6. NPLATE [Suspect]
     Active Substance: ROMIPLOSTIM
     Indication: IMMUNE THROMBOCYTOPENIC PURPURA
     Dosage: 2 MUG/KG, QWK
     Route: 065
     Dates: start: 200912
  7. LEXATIN                            /00424801/ [Concomitant]
     Active Substance: BROMAZEPAM
     Dosage: UNK
  8. NATECAL D [Concomitant]
     Active Substance: CALCIUM CARBONATE\CHOLECALCIFEROL
     Dosage: UNK
  9. ADIRO [Concomitant]
     Active Substance: ASPIRIN
     Dosage: 100 UNK, UNK

REACTIONS (10)
  - Thrombocytopenia [Unknown]
  - Herpes zoster [Unknown]
  - Tooth extraction [Unknown]
  - Fall [Unknown]
  - Syncope [Unknown]
  - Urinary tract infection [Unknown]
  - Pneumonia [Unknown]
  - Sepsis [Unknown]
  - Mobility decreased [Unknown]
  - Disability [Unknown]

NARRATIVE: CASE EVENT DATE: 2011
